FAERS Safety Report 4743606-2 (Version None)
Quarter: 2005Q3

REPORT INFORMATION
  Report Type: 
  Country: None (occurrence: None)
  Receive Date: 20050812
  Receipt Date: 20050504
  Transmission Date: 20060218
  Serious: Yes (Death, Other)
  Sender: FDA-Public Use
  Company Number: 200514051GDDC

PATIENT
  Age: 77 Year
  Sex: Male

DRUGS (22)
  1. FRUMIL [Suspect]
  2. FUROSEMIDE [Suspect]
  3. COMBIVENT [Suspect]
     Route: 055
  4. SPIRIVA [Suspect]
     Route: 055
  5. ALBUTEROL SULFATE HFA [Suspect]
     Dosage: DOSE: 100 MCG, BID
     Route: 055
  6. ASPIRIN [Suspect]
  7. ATORVASTATIN CALCIUM [Suspect]
  8. BECLOMETHASONE DIPROPIONATE [Suspect]
     Dosage: DOSE: 50 MCG, 2 BID
     Route: 055
  9. DEXAMETHASONE [Suspect]
  10. DILTIAZEM [Suspect]
  11. DOSULEPIN [Suspect]
  12. GAVISCON [Suspect]
  13. LACTULOSE [Suspect]
     Dosage: DOSE: 3.35 G/ 5 ML
  14. LANSOPRAZOLE [Suspect]
  15. METOCLOPRAMIDE [Suspect]
  16. NITROLINGUAL [Suspect]
  17. NOZINAN [Suspect]
  18. OXYCODONE [Suspect]
  19. OXYGEN [Suspect]
     Route: 055
  20. SPIRONOLACTONE [Suspect]
  21. SYMBICORT [Suspect]
     Dosage: DOSE: 200/6 UG, 1-2 PUFFS
     Route: 055
  22. TEMAZEPAM [Suspect]
     Dosage: DOSE: 10 MG, 1-2

REACTIONS (2)
  - LUNG NEOPLASM MALIGNANT [None]
  - MESOTHELIOMA [None]
